FAERS Safety Report 19560293 (Version 1)
Quarter: 2021Q3

REPORT INFORMATION
  Report Type: Spontaneous
  Country: US (occurrence: US)
  Receive Date: 20210714
  Receipt Date: 20210714
  Transmission Date: 20211014
  Serious: No
  Sender: FDA-Public Use
  Company Number: US-SK LIFE SCIENCE, INC-SKPVG-2020-000800

PATIENT

DRUGS (11)
  1. PHENOBARBITAL. [Suspect]
     Active Substance: PHENOBARBITAL
     Indication: MUSCLE SPASTICITY
     Dosage: 32.4 MILLIGRAM IN MORNING, 24.3 MG IN THE AFTERNOON, 48.6 MG IN THE EVENING
     Route: 065
  2. XCOPRI [Suspect]
     Active Substance: CENOBAMATE
     Indication: HYDRANENCEPHALY
     Dosage: 100 MILLIGRAM VIA G?TUBE QD IN EVENING
     Route: 048
     Dates: start: 20200929
  3. FYCOMPA [Suspect]
     Active Substance: PERAMPANEL
     Indication: PRODUCT USED FOR UNKNOWN INDICATION
     Dosage: UNK
     Route: 065
  4. GABAPENTIN. [Suspect]
     Active Substance: GABAPENTIN
     Indication: MUSCLE SPASTICITY
     Dosage: 200 MG IN MORNING, 200 MG MIDDAY, 900 MG AT BEDTIME?
     Route: 065
  5. EPIDIOLEX [Suspect]
     Active Substance: CANNABIDIOL
     Indication: MUSCLE SPASTICITY
     Dosage: 1.5 MILLILITER, BID
     Route: 065
  6. ONFI [Suspect]
     Active Substance: CLOBAZAM
     Indication: PRODUCT USED FOR UNKNOWN INDICATION
     Dosage: 70 MG IN A 24 HR PERIOD
     Route: 065
  7. CLONAZEPAM. [Concomitant]
     Active Substance: CLONAZEPAM
     Indication: SEIZURE
     Dosage: UNK
     Route: 065
  8. 8?TETRAHYDROCANNABINOL [Concomitant]
     Active Substance: .DELTA.8-TETRAHYDROCANNABINOL
     Indication: MUSCLE SPASTICITY
     Dosage: 1:1 CANNABINOL / TETRAHYDROCANNABINOL MIXTURE 0.4 ML IN MORNING AND 2 ML AT NIGHT
     Route: 065
  9. KEPPRA [Suspect]
     Active Substance: LEVETIRACETAM
     Indication: PRODUCT USED FOR UNKNOWN INDICATION
     Dosage: 100 MILLIGRAM, BID
     Route: 065
  10. ONFI [Suspect]
     Active Substance: CLOBAZAM
     Dosage: 5 MILLIGRAM AT BEDTIME
     Route: 065
  11. CANNABIDIOL [Concomitant]
     Active Substance: CANNABIDIOL
     Indication: MUSCLE SPASTICITY
     Dosage: 1:1 CANNABINOL / TETRAHYDROCANNABINOL MIXTURE 0.4 ML IN MORNING AND 2 ML AT NIGHT
     Route: 065

REACTIONS (2)
  - Incorrect route of product administration [Unknown]
  - Sedation [Recovering/Resolving]

NARRATIVE: CASE EVENT DATE: 20200929
